FAERS Safety Report 21876642 (Version 1)
Quarter: 2023Q1

REPORT INFORMATION
  Report Type: Spontaneous
  Country: PL (occurrence: PL)
  Receive Date: 20230118
  Receipt Date: 20230118
  Transmission Date: 20230417
  Serious: Yes (Death, Hospitalization)
  Sender: FDA-Public Use
  Company Number: PL-STRIDES ARCOLAB LIMITED-2023SP000789

PATIENT
  Age: 43 Year
  Sex: Male

DRUGS (10)
  1. DEXAMETHASONE [Suspect]
     Active Substance: DEXAMETHASONE
     Indication: Bone marrow conditioning regimen
     Dosage: 24 MILLIGRAM/SQ. METER ON DAYS -8 TO -2  (BEAM REGIMEN)
     Route: 065
  2. DEXAMETHASONE [Suspect]
     Active Substance: DEXAMETHASONE
     Indication: Plasmablastic lymphoma
  3. ETOPOSIDE [Suspect]
     Active Substance: ETOPOSIDE
     Indication: Bone marrow conditioning regimen
     Dosage: 200 MILLIGRAM/SQ. METER ON DAYS -7 TO -4 (BEAM REGIMEN)
     Route: 065
  4. ETOPOSIDE [Suspect]
     Active Substance: ETOPOSIDE
     Indication: Plasmablastic lymphoma
  5. CARMUSTINE [Suspect]
     Active Substance: CARMUSTINE
     Indication: Bone marrow conditioning regimen
     Dosage: 300 MILLIGRAM/SQ. METER ON DAYS -8 (BEAM REGIMEN)
     Route: 065
  6. CARMUSTINE [Suspect]
     Active Substance: CARMUSTINE
     Indication: Plasmablastic lymphoma
  7. CYTARABINE [Suspect]
     Active Substance: CYTARABINE
     Indication: Bone marrow conditioning regimen
     Dosage: 3000 MILLIGRAM/SQ. METER, BID (2 X 3000 MG/M2 ON DAY -3)
     Route: 065
  8. CYTARABINE [Suspect]
     Active Substance: CYTARABINE
     Indication: Plasmablastic lymphoma
  9. MELPHALAN [Suspect]
     Active Substance: MELPHALAN
     Indication: Bone marrow conditioning regimen
     Dosage: 140 MILLIGRAM/SQ. METER ON DAY -2 (BEAM REGIMEN)
     Route: 065
  10. MELPHALAN [Suspect]
     Active Substance: MELPHALAN
     Indication: Plasmablastic lymphoma

REACTIONS (8)
  - Neutropenic colitis [Fatal]
  - Septic shock [Fatal]
  - Ileus paralytic [Fatal]
  - Haematemesis [Fatal]
  - Enterococcal infection [Unknown]
  - Escherichia infection [Unknown]
  - Pseudomonas infection [Unknown]
  - Off label use [Unknown]
